FAERS Safety Report 7550700 (Version 11)
Quarter: 2014Q4

REPORT INFORMATION
  Report Type: Report from Study
  Country: JP (occurrence: JP)
  Receive Date: 20100823
  Receipt Date: 20141117
  Transmission Date: 20150529
  Serious: Yes (Other)
  Sender: FDA-Public Use
  Company Number: PHHY2010JP08075

PATIENT
  Age: 70 Year
  Sex: Male

DRUGS (15)
  1. AMN107 [Suspect]
     Active Substance: NILOTINIB
     Indication: CHRONIC MYELOID LEUKAEMIA
     Dosage: 400 MG DAILY
     Route: 048
     Dates: start: 20091001, end: 20091118
  2. AMN107 [Suspect]
     Active Substance: NILOTINIB
     Dosage: 200 MG, QW
     Route: 048
     Dates: start: 20100303, end: 20100331
  3. AMN107 [Suspect]
     Active Substance: NILOTINIB
     Dosage: 600 MG
     Route: 048
     Dates: start: 20100721, end: 20100903
  4. PROMAC [Concomitant]
     Active Substance: NITROFURANTOIN
     Indication: PRODUCT USED FOR UNKNOWN INDICATION
     Dosage: 1 G, UNK
     Route: 048
     Dates: end: 20111011
  5. AMLODIN OD [Concomitant]
     Active Substance: AMLODIPINE BESYLATE
     Indication: PRODUCT USED FOR UNKNOWN INDICATION
     Dosage: 2.5 MG, UNK
     Route: 048
     Dates: end: 20101101
  6. AMN107 [Suspect]
     Active Substance: NILOTINIB
     Dosage: 200 MG, QOD
     Route: 048
     Dates: start: 20100120, end: 20100202
  7. AMN107 [Suspect]
     Active Substance: NILOTINIB
     Dosage: 600 MG
     Route: 048
     Dates: start: 20101009
  8. AMOBAN [Concomitant]
     Active Substance: ZOPICLONE
     Indication: PRODUCT USED FOR UNKNOWN INDICATION
     Dosage: 7.5 MG, UNK
     Route: 048
  9. ITRIZOLE [Concomitant]
     Active Substance: ITRACONAZOLE
     Indication: PROPHYLAXIS
     Dosage: 100 MG DAILY
     Route: 048
     Dates: end: 20100107
  10. AMN107 [Suspect]
     Active Substance: NILOTINIB
     Dosage: 400 MG, QW2
     Route: 048
     Dates: start: 20100401, end: 20100720
  11. ZYLORIC [Concomitant]
     Active Substance: ALLOPURINOL
     Indication: PRODUCT USED FOR UNKNOWN INDICATION
     Dosage: 200 MG, UNK
     Route: 048
  12. ZYLORIC [Concomitant]
     Active Substance: ALLOPURINOL
     Dosage: 100 MG, UNK
     Route: 048
  13. ALBUMIN TANNATE [Concomitant]
     Active Substance: ALBUMIN BOVINE\TANNIC ACID
     Indication: PRODUCT USED FOR UNKNOWN INDICATION
     Dosage: 2 G, UNK
     Route: 048
     Dates: end: 20091028
  14. AMN107 [Suspect]
     Active Substance: NILOTINIB
     Dosage: 200 MG DAILY
     Route: 048
     Dates: start: 20091216, end: 20100119
  15. DEPAKENE [Concomitant]
     Active Substance: VALPROIC ACID
     Indication: PRODUCT USED FOR UNKNOWN INDICATION
     Dosage: 800 MG, UNK
     Route: 048

REACTIONS (16)
  - Blood potassium increased [Unknown]
  - Platelet count decreased [Recovering/Resolving]
  - Neutropenia [Unknown]
  - Thrombocytopenia [Recovered/Resolved]
  - Eosinophilia [Recovered/Resolved]
  - Aspartate aminotransferase increased [Unknown]
  - Epistaxis [Recovered/Resolved]
  - Chest pain [Unknown]
  - Haemoglobin decreased [Unknown]
  - Haematocrit decreased [Unknown]
  - Blood creatinine increased [Unknown]
  - Blood urea increased [Unknown]
  - Lipase increased [Recovering/Resolving]
  - Alanine aminotransferase increased [Unknown]
  - Red blood cell count decreased [Unknown]
  - Gamma-glutamyltransferase increased [Unknown]

NARRATIVE: CASE EVENT DATE: 20091118
